FAERS Safety Report 20861786 (Version 1)
Quarter: 2022Q2

REPORT INFORMATION
  Report Type: Spontaneous
  Country: PS (occurrence: PS)
  Receive Date: 20220523
  Receipt Date: 20220523
  Transmission Date: 20220720
  Serious: Yes (Life-Threatening, Hospitalization, Other)
  Sender: FDA-Public Use
  Company Number: PS-JUBILANT CADISTA PHARMACEUTICALS-2022JUB00146

PATIENT
  Age: 30 Year
  Sex: Female

DRUGS (2)
  1. CARBAMAZEPINE [Suspect]
     Active Substance: CARBAMAZEPINE
     Indication: Bipolar disorder
     Dosage: UNK MG
     Route: 065
  2. CARBAMAZEPINE [Suspect]
     Active Substance: CARBAMAZEPINE
     Dosage: INGESTED 62 CONTROLLED RELEASE CARBAMAZEPINE TABLETS OF 200MG EACH
     Route: 048

REACTIONS (8)
  - Suicide attempt [Recovered/Resolved]
  - Encephalopathy [Recovered/Resolved]
  - Coma [Recovered/Resolved]
  - Ophthalmoplegia [Recovered/Resolved]
  - Myoclonic epilepsy [Recovered/Resolved]
  - Dystonia [Recovered/Resolved]
  - Toxicity to various agents [Recovered/Resolved]
  - Overdose [Recovered/Resolved]
